FAERS Safety Report 12805201 (Version 2)
Quarter: 2016Q4

REPORT INFORMATION
  Report Type: Spontaneous
  Country: US (occurrence: US)
  Receive Date: 20161004
  Receipt Date: 20161017
  Transmission Date: 20170207
  Serious: Yes (Other)
  Sender: FDA-Public Use
  Company Number: US-SUN PHARMACEUTICAL INDUSTRIES LTD-2016US-125303

PATIENT
  Age: 28 Year
  Sex: Female

DRUGS (2)
  1. TESTOSTERONE. [Suspect]
     Active Substance: TESTOSTERONE
     Dosage: 0.3MG, RECEIVED TESTOSTERONE (0.3 TO 0.5 MG) FOR 3 YEAR
     Route: 065
  2. TESTOSTERONE. [Suspect]
     Active Substance: TESTOSTERONE
     Indication: PRODUCT USED FOR UNKNOWN INDICATION
     Dosage: 0.5 MG, RECEIVED INJECTABLE TESTOSTERONE (0.3 TO 0.5 MG) FOR 3 YEAR
     Route: 065

REACTIONS (1)
  - Virilism [Unknown]
